FAERS Safety Report 10283966 (Version 3)
Quarter: 2014Q3

REPORT INFORMATION
  Report Type: Spontaneous
  Country: DE (occurrence: None)
  Receive Date: 20140703
  Receipt Date: 20140826
  Transmission Date: 20150326
  Serious: Yes (Other)
  Sender: FDA-Public Use
  Company Number: 2014-19864

PATIENT
  Age: 91 Year
  Sex: Female

DRUGS (5)
  1. OMEPRAZOL (OMEPRAZOLE) [Concomitant]
  2. LUTEIN (XANTOFYL) [Concomitant]
  3. PRESOMEN (ESTROGENS CONJUGATED) [Concomitant]
  4. EYLEA [Suspect]
     Active Substance: AFLIBERCEPT
     Indication: PRODUCT USED FOR UNKNOWN INDICATION
     Dosage: UNK, ONCE
  5. METHIONINE (METHIONINE) [Concomitant]

REACTIONS (2)
  - Inappropriate schedule of drug administration [None]
  - Retinal haemorrhage [None]

NARRATIVE: CASE EVENT DATE: 20140113
